FAERS Safety Report 5939640-7 (Version None)
Quarter: 2008Q4

REPORT INFORMATION
  Report Type: 
  Country: None (occurrence: None)
  Receive Date: 20081030
  Receipt Date: 20081030
  Transmission Date: 20090506
  Serious: No
  Sender: FDA-Public Use
  Company Number: None

PATIENT
  Sex: Female
  Weight: 63.5036 kg

DRUGS (2)
  1. MORPHINE SULFATE [Suspect]
     Indication: PAIN
     Dosage: 60 MGS / QTY #30 TAKE 1 3X'S DAY BY MOUTH
     Route: 048
     Dates: start: 20080926
  2. MORPHINE SULFATE [Suspect]
     Indication: PAIN
     Dosage: 60 MGS / QTY #30 TAKE 1 3X'S DAY BY MOUTH
     Route: 048
     Dates: start: 20081001

REACTIONS (4)
  - DEHYDRATION [None]
  - DRUG INEFFECTIVE [None]
  - NAUSEA [None]
  - VOMITING [None]
